FAERS Safety Report 8276876-7 (Version None)
Quarter: 2012Q2

REPORT INFORMATION
  Report Type: 
  Country: None (occurrence: None)
  Receive Date: 20120412
  Receipt Date: 20120409
  Transmission Date: 20120825
  Serious: Yes (Hospitalization)
  Sender: FDA-Public Use
  Company Number: US-PFIZER INC-2012088586

PATIENT
  Sex: Female

DRUGS (2)
  1. VFEND [Suspect]
     Indication: ASPERGILLOSIS
     Dosage: 200 MG, 1X/DAY
     Route: 048
     Dates: start: 20110101
  2. VFEND [Suspect]
     Dosage: UNK
     Route: 048

REACTIONS (6)
  - BONE DISORDER [None]
  - COUGH [None]
  - BRONCHITIS [None]
  - FALL [None]
  - RIB FRACTURE [None]
  - PNEUMONIA [None]
